FAERS Safety Report 6099179-8 (Version None)
Quarter: 2009Q1

REPORT INFORMATION
  Report Type: 
  Country: None (occurrence: None)
  Receive Date: 20090302
  Receipt Date: 20090218
  Transmission Date: 20090719
  Serious: Yes (Hospitalization)
  Sender: FDA-Public Use
  Company Number: GB-WYE-H08395209

PATIENT
  Sex: Male

DRUGS (1)
  1. PANTOPAN [Suspect]
     Dosage: UNKNOWN
     Route: 048
     Dates: start: 20070601, end: 20070601

REACTIONS (4)
  - CHOKING [None]
  - CYST [None]
  - GASTROOESOPHAGEAL REFLUX DISEASE [None]
  - PRODUCT QUALITY ISSUE [None]
